FAERS Safety Report 21321470 (Version 1)
Quarter: 2022Q3

REPORT INFORMATION
  Report Type: Spontaneous
  Country: CN (occurrence: None)
  Receive Date: 20220912
  Receipt Date: 20220912
  Transmission Date: 20221026
  Serious: Yes (Hospitalization, Other)
  Sender: FDA-Public Use
  Company Number: CN-ROCHE-3176799

PATIENT
  Age: 63 Year
  Sex: Male
  Weight: 52 kg

DRUGS (3)
  1. PERJETA [Suspect]
     Active Substance: PERTUZUMAB
     Indication: Breast cancer
     Dosage: 840 MG FIRST, 420 MG SUBSEQUENT DAY 1
     Route: 041
     Dates: start: 20220816, end: 20220816
  2. HERCEPTIN [Suspect]
     Active Substance: TRASTUZUMAB
     Indication: Breast cancer
     Dosage: 416 MG FIRST, 312 MG SUBSEQUENT DAY 1
     Route: 041
     Dates: start: 20220816, end: 20220816
  3. DOCETAXEL [Suspect]
     Active Substance: DOCETAXEL
     Indication: Breast cancer
     Route: 041
     Dates: start: 20220816, end: 20220816

REACTIONS (3)
  - Myelosuppression [Recovering/Resolving]
  - Granulocytopenia [Recovering/Resolving]
  - Anaemia [Recovering/Resolving]

NARRATIVE: CASE EVENT DATE: 20220822
